FAERS Safety Report 10438143 (Version 2)
Quarter: 2015Q2

REPORT INFORMATION
  Report Type: Spontaneous
  Country: US (occurrence: US)
  Receive Date: 20140908
  Receipt Date: 20150511
  Transmission Date: 20150821
  Serious: No
  Sender: FDA-Public Use
  Company Number: US-BRISTOL-MYERS SQUIBB COMPANY-20557278

PATIENT
  Sex: Female
  Weight: 91 kg

DRUGS (1)
  1. ABILIFY [Suspect]
     Active Substance: ARIPIPRAZOLE
     Indication: ANTIDEPRESSANT THERAPY
     Dosage: UNK
     Route: 065

REACTIONS (1)
  - Pathological gambling [Unknown]
